FAERS Safety Report 4629345-7 (Version None)
Quarter: 2005Q2

REPORT INFORMATION
  Report Type: 
  Country: None (occurrence: None)
  Receive Date: 20050404
  Receipt Date: 20050314
  Transmission Date: 20051028
  Serious: Yes (Other)
  Sender: FDA-Public Use
  Company Number: B0374563A

PATIENT
  Age: 66 Year
  Sex: Male

DRUGS (5)
  1. ADVAIR HFA [Suspect]
     Indication: ASTHMA
     Dosage: INHALED
     Route: 055
  2. RITONAVIR (RITONAVIR) [Suspect]
     Indication: HIV INFECTION
  3. ZIDOVUDINE [Concomitant]
  4. LAMIVUDINE [Concomitant]
  5. INDINAVIR SULFATE [Concomitant]

REACTIONS (14)
  - AMNESIA [None]
  - BLOOD CORTISOL DECREASED [None]
  - CHRONIC INFLAMMATORY DEMYELINATING POLYRADICULONEUROPATHY [None]
  - DISTURBANCE IN ATTENTION [None]
  - DRUG INTERACTION [None]
  - FATIGUE [None]
  - INCREASED TENDENCY TO BRUISE [None]
  - LETHARGY [None]
  - LIPOMATOSIS [None]
  - MUSCLE ATROPHY [None]
  - OESOPHAGEAL CANDIDIASIS [None]
  - PANCREATITIS ACUTE [None]
  - PERONEAL NERVE PALSY [None]
  - SOMNOLENCE [None]
